FAERS Safety Report 24699281 (Version 1)
Quarter: 2024Q4

REPORT INFORMATION
  Report Type: Report from Study
  Country: AR (occurrence: AR)
  Receive Date: 20241205
  Receipt Date: 20241205
  Transmission Date: 20250115
  Serious: Yes (Other)
  Sender: AMGEN
  Company Number: AR-AMGEN-ARGSL2024187416

PATIENT
  Age: 37 Year
  Sex: Female

DRUGS (3)
  1. VECTIBIX [Suspect]
     Active Substance: PANITUMUMAB
     Indication: Colorectal cancer
     Dosage: UNK, 15 DAYS
     Route: 065
     Dates: start: 20240911
  2. VECTIBIX [Suspect]
     Active Substance: PANITUMUMAB
     Dosage: UNK,  DOSE OF PANITUMUMAB WAS LOWERED BY 80%
     Route: 065
     Dates: start: 2024
  3. VECTIBIX [Suspect]
     Active Substance: PANITUMUMAB
     Dosage: UNK,  15 DAYS
     Route: 065
     Dates: start: 2024

REACTIONS (16)
  - Bedridden [Unknown]
  - Seborrhoea [Unknown]
  - Skin reaction [Unknown]
  - Skin lesion [Unknown]
  - Urticaria [Unknown]
  - Flushing [Unknown]
  - Dermatitis allergic [Unknown]
  - Erythema [Unknown]
  - Rash [Unknown]
  - Dry skin [Unknown]
  - Skin exfoliation [Unknown]
  - Alopecia [Unknown]
  - Acne [Unknown]
  - Feeling abnormal [Unknown]
  - Illness [Unknown]
  - Pain of skin [Unknown]

NARRATIVE: CASE EVENT DATE: 20240101
